FAERS Safety Report 6011011-7 (Version None)
Quarter: 2008Q4

REPORT INFORMATION
  Report Type: 
  Country: None (occurrence: None)
  Receive Date: 20081218
  Receipt Date: 20081217
  Transmission Date: 20090506
  Serious: Yes (Other)
  Sender: FDA-Public Use
  Company Number: B0551068A

PATIENT
  Age: 22 Year
  Sex: Male

DRUGS (2)
  1. LAMIVUDINE [Suspect]
     Indication: PROPHYLAXIS
     Dosage: 50MG PER DAY
     Route: 065
  2. ADEFOVIR DIPIVOXIL KIT [Concomitant]

REACTIONS (8)
  - ASCITES [None]
  - ASPARTATE AMINOTRANSFERASE INCREASED [None]
  - COAGULOPATHY [None]
  - DRUG INEFFECTIVE [None]
  - HEPATITIS B [None]
  - HEPATORENAL SYNDROME [None]
  - JAUNDICE [None]
  - OEDEMA PERIPHERAL [None]
